FAERS Safety Report 4743347-1 (Version None)
Quarter: 2005Q3

REPORT INFORMATION
  Report Type: 
  Country: None (occurrence: None)
  Receive Date: 20050809
  Receipt Date: 20050728
  Transmission Date: 20060218
  Serious: No
  Sender: FDA-Public Use
  Company Number: 05H-163-0301252-00

PATIENT

DRUGS (4)
  1. ETOMIDATE [Suspect]
     Indication: SEDATION
     Dosage: 0.1 MG/KG,
  2. OXYGEN (OXYGEN) [Concomitant]
  3. MORPHINE [Concomitant]
  4. FENTANYL [Concomitant]

REACTIONS (1)
  - OXYGEN SATURATION DECREASED [None]
